FAERS Safety Report 4957262-1 (Version None)
Quarter: 2006Q1

REPORT INFORMATION
  Report Type: 
  Country: None (occurrence: None)
  Receive Date: 20060329
  Receipt Date: 20060321
  Transmission Date: 20060701
  Serious: Yes (Other)
  Sender: FDA-Public Use
  Company Number: US-MERCK-0603USA03505

PATIENT
  Age: 56 Year
  Sex: Male
  Weight: 93 kg

DRUGS (14)
  1. VIOXX [Suspect]
     Route: 048
     Dates: start: 20010101
  2. VIAGRA [Suspect]
     Indication: ERECTILE DYSFUNCTION
     Route: 065
     Dates: start: 20010101
  3. VIAGRA [Suspect]
     Indication: ILL-DEFINED DISORDER
     Route: 065
     Dates: start: 20010101
  4. REMICADE [Suspect]
     Indication: ILL-DEFINED DISORDER
     Route: 065
  5. MOBIC [Suspect]
     Indication: ILL-DEFINED DISORDER
     Route: 065
  6. VICODIN [Concomitant]
     Route: 065
  7. FLEXERIL [Concomitant]
     Indication: RHEUMATOID ARTHRITIS
     Route: 048
  8. ZETIA [Concomitant]
     Route: 048
  9. CELEBREX [Concomitant]
     Route: 065
  10. DIUREX (FUROSEMIDE) [Concomitant]
     Indication: FLUID RETENTION
     Route: 065
  11. HUMIRA [Concomitant]
     Indication: RHEUMATOID ARTHRITIS
     Route: 065
  12. ADVAIR DISKUS 100/50 [Concomitant]
     Indication: ASTHMA
     Route: 065
  13. NASACORT [Concomitant]
     Indication: ASTHMA
     Route: 065
  14. LIPITOR [Concomitant]
     Route: 065

REACTIONS (7)
  - CONFUSIONAL STATE [None]
  - CYANOPSIA [None]
  - DIZZINESS [None]
  - FEELING HOT [None]
  - FLUSHING [None]
  - HEART RATE INCREASED [None]
  - MYOCARDIAL INFARCTION [None]
